FAERS Safety Report 9799598 (Version 1)
Quarter: 2014Q1

REPORT INFORMATION
  Report Type: Spontaneous
  Country: US (occurrence: US)
  Receive Date: 20140106
  Receipt Date: 20140106
  Transmission Date: 20141002
  Serious: No
  Sender: FDA-Public Use
  Company Number: US-GILEAD-2010-0031515

PATIENT
  Age: 80 Year
  Sex: Female
  Weight: 57.61 kg

DRUGS (19)
  1. LETAIRIS [Suspect]
     Indication: PULMONARY ARTERIAL HYPERTENSION
     Route: 048
     Dates: start: 20080619
  2. LASIX [Concomitant]
  3. ATENOLOL [Concomitant]
  4. NORVASC [Concomitant]
  5. LIPITOR [Concomitant]
  6. ENALAPRIL [Concomitant]
  7. METFORMIN [Concomitant]
  8. ASPIRIN [Concomitant]
  9. TRIAMCINOLONE [Concomitant]
  10. PREDNISOLONE [Concomitant]
  11. LEVOTHYROXINE [Concomitant]
  12. BONIVA [Concomitant]
  13. IMURAN [Concomitant]
  14. NYSTATIN [Concomitant]
  15. LEVAQUIN [Concomitant]
  16. ECONAZOLE [Concomitant]
  17. NUMOISYN LOZENGE [Concomitant]
  18. VITAMIN D [Concomitant]
  19. CALCIUM 500+D [Concomitant]

REACTIONS (2)
  - Pain [Unknown]
  - Productive cough [Unknown]
